FAERS Safety Report 22127610 (Version 1)
Quarter: 2023Q1

REPORT INFORMATION
  Report Type: Spontaneous
  Country: US (occurrence: None)
  Receive Date: 20230323
  Receipt Date: 20230323
  Transmission Date: 20230418
  Serious: No
  Sender: FDA-Public Use
  Company Number: 2023A054484

PATIENT
  Sex: Male

DRUGS (2)
  1. FARXIGA [Suspect]
     Active Substance: DAPAGLIFLOZIN PROPANEDIOL
     Dosage: UNKNOWN
     Route: 048
  2. XTANDI [Interacting]
     Active Substance: ENZALUTAMIDE
     Route: 048

REACTIONS (3)
  - Blood glucose increased [Unknown]
  - Drug interaction [Unknown]
  - Drug ineffective [Unknown]
